FAERS Safety Report 9424189 (Version 3)
Quarter: 2013Q3

REPORT INFORMATION
  Report Type: Spontaneous
  Country: US (occurrence: US)
  Receive Date: 20130729
  Receipt Date: 20130822
  Transmission Date: 20140515
  Serious: Yes (Disabling, Other)
  Sender: FDA-Public Use
  Company Number: US-009507513-1307USA015401

PATIENT
  Age: 65 Year
  Sex: Female
  Weight: 72.56 kg

DRUGS (5)
  1. SAPHRIS [Suspect]
     Indication: BIPOLAR DISORDER
     Dosage: 5 MG, HS
     Route: 048
     Dates: start: 20130624, end: 20130703
  2. SAPHRIS [Suspect]
     Indication: DEPRESSION
  3. REMERON [Suspect]
     Indication: BIPOLAR DISORDER
     Dosage: 30 MG, HS
     Route: 048
     Dates: end: 20130624
  4. REMERON [Suspect]
     Dosage: 15 MG, HS
     Route: 048
  5. LAMICTAL [Concomitant]
     Dosage: 200

REACTIONS (3)
  - Mania [Recovered/Resolved]
  - Underdose [Unknown]
  - Inappropriate schedule of drug administration [Unknown]
